FAERS Safety Report 11159297 (Version 1)
Quarter: 2015Q2

REPORT INFORMATION
  Report Type: Spontaneous
  Country: JP (occurrence: JP)
  Receive Date: 20150603
  Receipt Date: 20150603
  Transmission Date: 20150821
  Serious: Yes (Death, Hospitalization)
  Sender: FDA-Public Use
  Company Number: PHHY2015JP065111

PATIENT
  Age: 69 Year
  Sex: Male

DRUGS (2)
  1. OXALIPLATIN. [Suspect]
     Active Substance: OXALIPLATIN
     Indication: RECTAL CANCER STAGE III
     Route: 065
  2. CAPECITABINE. [Suspect]
     Active Substance: CAPECITABINE
     Indication: RECTAL CANCER STAGE III
     Route: 065

REACTIONS (13)
  - Hepatitis fulminant [Unknown]
  - Drug-induced liver injury [Unknown]
  - Lymphadenopathy [Fatal]
  - Ocular icterus [Unknown]
  - Disseminated intravascular coagulation [Unknown]
  - Hepatic encephalopathy [Unknown]
  - Anaemia [Unknown]
  - Hepatomegaly [Unknown]
  - Coagulopathy [Unknown]
  - Fatigue [Unknown]
  - Hepatic vein occlusion [Fatal]
  - Venoocclusive liver disease [Fatal]
  - Thrombocytopenia [Unknown]
